FAERS Safety Report 23794534 (Version 4)
Quarter: 2025Q3

REPORT INFORMATION
  Report Type: Spontaneous
  Country: US (occurrence: US)
  Receive Date: 20240429
  Receipt Date: 20250711
  Transmission Date: 20251020
  Serious: No
  Sender: SANOFI AVENTIS
  Company Number: US-SA-SAC20240426000390

PATIENT
  Age: 13 Year
  Sex: Male

DRUGS (1)
  1. DUPIXENT [Suspect]
     Active Substance: DUPILUMAB
     Indication: Dermatitis atopic
     Dosage: 300 MG, QOW
     Route: 058
     Dates: start: 202301

REACTIONS (5)
  - Acne [Unknown]
  - Rebound atopic dermatitis [Unknown]
  - Dermatitis atopic [Unknown]
  - Erythema [Unknown]
  - Skin irritation [Unknown]

NARRATIVE: CASE EVENT DATE: 20250630
